FAERS Safety Report 6358954-2 (Version None)
Quarter: 2009Q3

REPORT INFORMATION
  Report Type: 
  Country: None (occurrence: None)
  Receive Date: 20090914
  Receipt Date: 20090902
  Transmission Date: 20100115
  Serious: Yes (Other)
  Sender: FDA-Public Use
  Company Number: 220003M09GBR

PATIENT
  Age: 14 Year
  Sex: Female

DRUGS (6)
  1. SAIZEN [Suspect]
     Dates: start: 20090601, end: 20090701
  2. SAIZEN [Suspect]
     Dates: start: 20090701
  3. EXJADE (ALL OTHER THERAPEUTIC PRODUCTS) [Concomitant]
  4. LATANOPROST [Concomitant]
  5. BISOPROLOL FUMARATE [Concomitant]
  6. BRIMONIDINE TARTRATE [Concomitant]

REACTIONS (5)
  - ANTIBODY TEST ABNORMAL [None]
  - BONE MARROW TRANSPLANT [None]
  - COOMBS TEST POSITIVE [None]
  - HAEMOGLOBIN DECREASED [None]
  - IMMUNODEFICIENCY [None]
